FAERS Safety Report 9782593 (Version 1)
Quarter: 2013Q4

REPORT INFORMATION
  Report Type: Spontaneous
  Country: GB (occurrence: GB)
  Receive Date: 20131226
  Receipt Date: 20131226
  Transmission Date: 20140711
  Serious: Yes (Disabling)
  Sender: FDA-Public Use
  Company Number: PHFR2013GB007306

PATIENT
  Age: 61 Year
  Sex: Female

DRUGS (5)
  1. ACLASTA [Suspect]
     Indication: OSTEOPOROSIS
     Dosage: UNK UKN, UNK
     Route: 042
     Dates: start: 20130124, end: 20130124
  2. TEGRETOL [Concomitant]
     Dosage: 400 MG, BID
  3. ZONEGRAN [Concomitant]
     Dosage: UNK UKN, UNK
  4. COLECALCIFEROL [Concomitant]
     Dosage: UNK UKN, UNK
  5. MOVICOL [Concomitant]
     Dosage: UNK UKN, UNK

REACTIONS (1)
  - Convulsion [Recovered/Resolved]
